FAERS Safety Report 25201150 (Version 4)
Quarter: 2025Q2

REPORT INFORMATION
  Report Type: Spontaneous
  Country: US (occurrence: US)
  Receive Date: 20250416
  Receipt Date: 20250529
  Transmission Date: 20250716
  Serious: No
  Sender: SANOFI AVENTIS
  Company Number: US-SANOFI-02484284

PATIENT
  Age: 70 Year
  Sex: Female

DRUGS (2)
  1. KEVZARA [Suspect]
     Active Substance: SARILUMAB
     Indication: Polymyalgia rheumatica
     Dosage: 200 MG, QOW
     Dates: start: 202406
  2. KEVZARA [Suspect]
     Active Substance: SARILUMAB
     Dosage: 200MG,QOW
     Route: 058

REACTIONS (6)
  - Injury associated with device [Unknown]
  - Injection site pain [Unknown]
  - Needle issue [Unknown]
  - Arthralgia [Unknown]
  - Anxiety [Unknown]
  - Nervousness [Unknown]

NARRATIVE: CASE EVENT DATE: 20250406
